FAERS Safety Report 7370281-3 (Version None)
Quarter: 2011Q1

REPORT INFORMATION
  Report Type: 
  Country: None (occurrence: None)
  Receive Date: 20110323
  Receipt Date: 20110317
  Transmission Date: 20110831
  Serious: Yes (Life-Threatening, Hospitalization, Other)
  Sender: FDA-Public Use
  Company Number: JP-PFIZER INC-2011014650

PATIENT
  Age: 83 Year
  Sex: Female
  Weight: 37 kg

DRUGS (18)
  1. ZITHROMAX [Suspect]
     Indication: UPPER RESPIRATORY TRACT INFLAMMATION
     Dosage: 500 MG, 1X/DAY
     Route: 048
     Dates: start: 20110102, end: 20110104
  2. BLOPRESS [Concomitant]
     Indication: CARDIAC FAILURE
     Dosage: 4 MG, 1X/DAY
     Route: 048
     Dates: start: 20070201
  3. FERROUS CITRATE [Concomitant]
     Indication: NEPHROGENIC ANAEMIA
     Dosage: 50 MG, 2X/DAY
     Route: 048
     Dates: start: 20100107, end: 20110105
  4. BIOFERMIN [Concomitant]
  5. MEDICON [Concomitant]
     Indication: UPPER RESPIRATORY TRACT INFECTION
     Dosage: 15 MG, 3X/DAY
     Route: 048
     Dates: start: 20101226, end: 20101229
  6. MUCODYNE [Concomitant]
     Indication: UPPER RESPIRATORY TRACT INFECTION
     Dosage: 500 MG, 3X/DAY
     Route: 048
     Dates: start: 20101226, end: 20101229
  7. TOUGHMAC E [Concomitant]
     Indication: DYSPEPSIA
     Dosage: 1 DF, 3X/DAY
     Route: 048
  8. MYSLEE [Concomitant]
     Indication: INSOMNIA
     Dosage: 10 MG, 1X/DAY
     Route: 048
     Dates: start: 20100823
  9. FLOMAX [Concomitant]
     Indication: UPPER RESPIRATORY TRACT INFECTION
     Dosage: 100 MG, 3X/DAY
     Route: 048
     Dates: start: 20101226, end: 20101229
  10. ALLOPURINOL [Concomitant]
     Indication: HYPERURICAEMIA
     Dosage: 100 MG, 2X/DAY
     Route: 048
     Dates: start: 20070517
  11. ALDACTONE [Concomitant]
     Indication: CARDIAC FAILURE
     Dosage: 12.5 MG, 1X/DAY
     Route: 048
     Dates: end: 20110105
  12. ROCEPHIN [Concomitant]
     Indication: UPPER RESPIRATORY TRACT INFLAMMATION
     Dosage: 2 G, 1X/DAY
     Route: 041
     Dates: start: 20110102, end: 20110102
  13. SPELEAR [Concomitant]
     Indication: UPPER RESPIRATORY TRACT INFLAMMATION
     Dosage: 400 MG, 3X/DAY
     Route: 048
     Dates: start: 20110102, end: 20110106
  14. BISOLVON [Concomitant]
     Indication: UPPER RESPIRATORY TRACT INFLAMMATION
     Dosage: 4 MG, 3X/DAY
     Route: 048
     Dates: start: 20110102, end: 20110106
  15. PROMETHAZINE METHYLENEDISALICYLATE [Concomitant]
     Indication: UPPER RESPIRATORY TRACT INFLAMMATION
     Dosage: 1 G, 3X/DAY
     Route: 048
     Dates: start: 20110102, end: 20110106
  16. LANSOPRAZOLE [Concomitant]
     Indication: GASTRITIS
     Dosage: 15 MG, 1X/DAY
     Route: 048
     Dates: start: 20090618
  17. LASIX [Concomitant]
     Indication: CARDIAC FAILURE
     Dosage: 40 MG, 2X/DAY
     Route: 048
  18. ACARDI [Concomitant]
     Indication: CARDIAC FAILURE
     Dosage: 2.5 MG, 2X/DAY
     Route: 048
     Dates: start: 20100506

REACTIONS (2)
  - HYPERKALAEMIA [None]
  - CARDIAC FAILURE [None]
